FAERS Safety Report 19510503 (Version 1)
Quarter: 2021Q3

REPORT INFORMATION
  Report Type: Spontaneous
  Country: JP (occurrence: JP)
  Receive Date: 20210709
  Receipt Date: 20210709
  Transmission Date: 20211014
  Serious: Yes (Other)
  Sender: FDA-Public Use
  Company Number: JP-GLAXOSMITHKLINE-JP2021119408

PATIENT
  Age: 6 Year
  Sex: Female
  Weight: 8 kg

DRUGS (5)
  1. EXCEGRAN POWDER [Concomitant]
     Dosage: UNK
  2. VALPROATE SODIUM. [Concomitant]
     Active Substance: VALPROATE SODIUM
     Dosage: UNK
  3. LAMICTAL [Suspect]
     Active Substance: LAMOTRIGINE
     Dosage: 36 MG, 1D
  4. RIVOTRIL [Concomitant]
     Active Substance: CLONAZEPAM
     Dosage: UNK
  5. LAMICTAL [Suspect]
     Active Substance: LAMOTRIGINE
     Dosage: UNK

REACTIONS (3)
  - Change in seizure presentation [Unknown]
  - Prescribed overdose [Unknown]
  - Off label use [Unknown]
